FAERS Safety Report 8474785-1 (Version None)
Quarter: 2012Q2

REPORT INFORMATION
  Report Type: 
  Country: None (occurrence: None)
  Receive Date: 20120628
  Receipt Date: 20120626
  Transmission Date: 20120825
  Serious: Yes (Other)
  Sender: FDA-Public Use
  Company Number: US-PFIZER INC-2012121207

PATIENT

DRUGS (1)
  1. DICLOFENAC EPOLAMINE [Suspect]
     Dosage: UNK

REACTIONS (1)
  - ULCER HAEMORRHAGE [None]
